FAERS Safety Report 14677618 (Version 1)
Quarter: 2018Q1

REPORT INFORMATION
  Report Type: Spontaneous
  Country: US (occurrence: US)
  Receive Date: 20180324
  Receipt Date: 20180324
  Transmission Date: 20180509
  Serious: Yes (Hospitalization)
  Sender: FDA-Public Use
  Company Number: None

PATIENT
  Age: 59 Year
  Sex: Female
  Weight: 72.45 kg

DRUGS (2)
  1. RECLAST [Suspect]
     Active Substance: ZOLEDRONIC ACID
     Indication: OSTEOPOROSIS
     Dosage: ?          OTHER ROUTE:INTRAVENOUSLY?
     Route: 042
     Dates: start: 20180301, end: 20180301
  2. SYNTHROID [Concomitant]
     Active Substance: LEVOTHYROXINE SODIUM

REACTIONS (10)
  - Pleural effusion [None]
  - Cough [None]
  - Gait disturbance [None]
  - Bedridden [None]
  - Pyrexia [None]
  - Influenza like illness [None]
  - Arthralgia [None]
  - Serum sickness [None]
  - Pericardial effusion [None]
  - Asthenia [None]

NARRATIVE: CASE EVENT DATE: 20180306
